FAERS Safety Report 13460720 (Version 1)
Quarter: 2017Q2

REPORT INFORMATION
  Report Type: Spontaneous
  Country: US (occurrence: US)
  Receive Date: 20170419
  Receipt Date: 20170419
  Transmission Date: 20170830
  Serious: No
  Sender: FDA-Public Use
  Company Number: None

PATIENT
  Age: 53 Year
  Sex: Female

DRUGS (9)
  1. IBRANCE [Suspect]
     Active Substance: PALBOCICLIB
     Indication: NEOPLASM MALIGNANT
     Route: 048
     Dates: start: 20160206
  2. CALCIUM [Concomitant]
     Active Substance: CALCIUM
  3. MULTIVITAMIN [Concomitant]
     Active Substance: VITAMINS
  4. VITAMIN B12 [Concomitant]
     Active Substance: CYANOCOBALAMIN
  5. CLARITIN [Concomitant]
     Active Substance: LORATADINE
  6. XGEVA [Suspect]
     Active Substance: DENOSUMAB
     Indication: NEOPLASM MALIGNANT
     Dosage: FREQUENCY - EVERY 28 DAYS
     Route: 058
     Dates: start: 20160809
  7. CULTURELLE [Concomitant]
     Active Substance: LACTOBACILLUS RHAMNOSUS
  8. LETROZOLE. [Concomitant]
     Active Substance: LETROZOLE
  9. VITAMIN K [Concomitant]
     Active Substance: PHYTONADIONE

REACTIONS (1)
  - Fatigue [None]
